FAERS Safety Report 4463250-4 (Version None)
Quarter: 2004Q3

REPORT INFORMATION
  Report Type: 
  Country: None (occurrence: None)
  Receive Date: 20040930
  Receipt Date: 20040907
  Transmission Date: 20050211
  Serious: Yes (Hospitalization)
  Sender: FDA-Public Use
  Company Number: FR-GLAXOSMITHKLINE-B0345009A

PATIENT
  Age: 36 Year
  Sex: Female

DRUGS (1)
  1. AUGMENTIN [Suspect]
     Route: 048
     Dates: start: 20021101

REACTIONS (7)
  - ANGIONEUROTIC OEDEMA [None]
  - DRUG INTOLERANCE [None]
  - DYSPHAGIA [None]
  - DYSPHONIA [None]
  - DYSPNOEA [None]
  - SNEEZING [None]
  - URTICARIA [None]
